FAERS Safety Report 6496972-4 (Version None)
Quarter: 2009Q4

REPORT INFORMATION
  Report Type: 
  Country: None (occurrence: None)
  Receive Date: 20091215
  Receipt Date: 20081110
  Transmission Date: 20100525
  Serious: No
  Sender: FDA-Public Use
  Company Number: A0756311A

PATIENT
  Sex: Male

DRUGS (2)
  1. AVODART [Suspect]
     Indication: DRUG USE FOR UNKNOWN INDICATION
     Dosage: .5MG PER DAY
     Route: 048
     Dates: start: 20080508
  2. FLOMAX [Suspect]
     Indication: DRUG USE FOR UNKNOWN INDICATION
     Dosage: .4MG PER DAY
     Route: 048

REACTIONS (2)
  - NOCTURIA [None]
  - THERAPEUTIC RESPONSE DECREASED [None]
